FAERS Safety Report 6216451-9 (Version None)
Quarter: 2009Q2

REPORT INFORMATION
  Report Type: 
  Country: None (occurrence: None)
  Receive Date: 20090605
  Receipt Date: 20090527
  Transmission Date: 20091009
  Serious: Yes (Other)
  Sender: FDA-Public Use
  Company Number: PL-AVENTIS-200915588GDDC

PATIENT
  Age: 42 Year
  Sex: Female
  Weight: 77 kg

DRUGS (4)
  1. ARAVA [Suspect]
     Indication: RHEUMATOID ARTHRITIS
     Dosage: DOSE: 10-20
     Route: 048
     Dates: start: 20050914, end: 20090308
  2. METYPRED [Concomitant]
     Dosage: DOSE: UNK
  3. RAWEL [Concomitant]
     Dosage: DOSE: UNK
  4. VITAMINS, OTHER COMBINATIONS [Concomitant]
     Dosage: DOSE: UNK

REACTIONS (1)
  - LIVER FUNCTION TEST ABNORMAL [None]
